FAERS Safety Report 4492150-9 (Version None)
Quarter: 2004Q4

REPORT INFORMATION
  Report Type: 
  Country: None (occurrence: None)
  Receive Date: 20041103
  Receipt Date: 20041025
  Transmission Date: 20050328
  Serious: Yes (Other)
  Sender: FDA-Public Use
  Company Number: US-GLAXOSMITHKLINE-A0531181A

PATIENT
  Age: 48 Year
  Sex: Female

DRUGS (13)
  1. ADVAIR [Suspect]
     Indication: EMPHYSEMA
     Dosage: 1PUFF TWICE PER DAY
     Route: 055
     Dates: start: 20040601
  2. GUAIFENESIN HYDROCODONE [Concomitant]
  3. EFFEXOR XR [Concomitant]
  4. PHENERGAN [Concomitant]
  5. HYDROCODONE [Concomitant]
  6. ELAVIL [Concomitant]
  7. ALBUTEROL [Concomitant]
  8. NEXIUM [Concomitant]
  9. ALBUTEROL [Concomitant]
  10. SEASONALE [Concomitant]
  11. SPIRIVA [Concomitant]
  12. TYLENOL [Concomitant]
  13. FLONASE [Concomitant]

REACTIONS (7)
  - BONE DISORDER [None]
  - LARYNGEAL OEDEMA [None]
  - LENTIGO [None]
  - LIVER DISORDER [None]
  - PULMONARY HAEMORRHAGE [None]
  - RESPIRATORY DISORDER [None]
  - TOOTH INJURY [None]
